FAERS Safety Report 13791222 (Version 4)
Quarter: 2017Q3

REPORT INFORMATION
  Report Type: Spontaneous
  Country: SK (occurrence: SK)
  Receive Date: 20170725
  Receipt Date: 20170922
  Transmission Date: 20171127
  Serious: Yes (Death, Hospitalization)
  Sender: FDA-Public Use
  Company Number: SK-PURDUE PHARMA-GBR-2017-0047055

PATIENT

DRUGS (14)
  1. DEGAN [Concomitant]
     Active Substance: METOCLOPRAMIDE HYDROCHLORIDE
     Indication: DYSPEPSIA
     Dosage: UNK
     Dates: start: 20170518
  2. HELICID                            /00661201/ [Concomitant]
     Indication: GASTROOESOPHAGEAL REFLUX PROPHYLAXIS
     Dosage: UNK
     Dates: start: 20170511
  3. FENTANYL. [Suspect]
     Active Substance: FENTANYL
     Indication: CANCER PAIN
     Dosage: 100 MCG, Q3D
     Route: 062
     Dates: start: 20170320
  4. CEBION                             /00008001/ [Concomitant]
     Indication: ASTHENIA
  5. TANEZUMAB [Suspect]
     Active Substance: TANEZUMAB
     Dosage: EVERY 8 WEEKS
     Route: 058
     Dates: start: 20170425
  6. PREDNISON [Concomitant]
     Active Substance: PREDNISONE
     Indication: DISEASE PROGRESSION
     Dosage: UNK
     Dates: start: 20170511
  7. TANEZUMAB [Suspect]
     Active Substance: TANEZUMAB
     Indication: CANCER PAIN
     Dosage: UNK
     Route: 058
     Dates: start: 20170620
  8. SIOFOR [Concomitant]
     Active Substance: METFORMIN HYDROCHLORIDE
     Indication: DIABETES MELLITUS
     Dosage: UNK
     Dates: start: 20161103
  9. CEBION                             /00008001/ [Concomitant]
     Indication: MALNUTRITION
  10. LEVEMIR [Concomitant]
     Active Substance: INSULIN DETEMIR
     Indication: DIABETES MELLITUS
     Dosage: UNK
     Dates: start: 20161103
  11. SEVREDOL [Suspect]
     Active Substance: MORPHINE
     Indication: CANCER PAIN
     Dosage: 10 MG, PRN
     Route: 048
     Dates: start: 20170316
  12. OLTAR [Concomitant]
     Indication: DIABETES MELLITUS
     Dosage: UNK
     Dates: start: 20161103
  13. FERRO FOLGAMMA [Concomitant]
     Indication: ANAEMIA
     Dosage: UNK
     Dates: start: 20170511
  14. CEBION                             /00008001/ [Concomitant]
     Indication: ANAEMIA
     Dosage: UNK
     Dates: start: 20170518

REACTIONS (2)
  - Neoplasm progression [Fatal]
  - Condition aggravated [Fatal]

NARRATIVE: CASE EVENT DATE: 20170626
